FAERS Safety Report 21089365 (Version 1)
Quarter: 2022Q3

REPORT INFORMATION
  Report Type: Spontaneous
  Country: US (occurrence: US)
  Receive Date: 20220715
  Receipt Date: 20220715
  Transmission Date: 20221027
  Serious: Yes (Other)
  Sender: FDA-Public Use
  Company Number: US-BAYER-2022A097701

PATIENT
  Age: 57 Year
  Sex: Female

DRUGS (2)
  1. ESTRADIOL [Suspect]
     Active Substance: ESTRADIOL
  2. PROMETRIUM [Concomitant]
     Active Substance: PROGESTERONE
     Indication: Hormone therapy
     Dosage: UNK
     Dates: start: 202204

REACTIONS (3)
  - Genital haemorrhage [None]
  - Device adhesion issue [None]
  - Incorrect dose administered by device [None]

NARRATIVE: CASE EVENT DATE: 20220630
